FAERS Safety Report 24763096 (Version 2)
Quarter: 2025Q1

REPORT INFORMATION
  Report Type: Report from Study
  Country: US (occurrence: US)
  Receive Date: 20241222
  Receipt Date: 20250108
  Transmission Date: 20250409
  Serious: Yes (Hospitalization, Other)
  Sender: ABBVIE
  Company Number: US-ABBVIE-6053711

PATIENT
  Age: 91 Year
  Sex: Female

DRUGS (1)
  1. HUMIRA [Suspect]
     Active Substance: ADALIMUMAB
     Indication: Product used for unknown indication
     Route: 058
     Dates: start: 2010

REACTIONS (8)
  - Meningitis [Unknown]
  - Inflammation [Unknown]
  - Blindness unilateral [Unknown]
  - Macular degeneration [Unknown]
  - Glaucoma [Unknown]
  - Condition aggravated [Recovering/Resolving]
  - Crohn^s disease [Unknown]
  - Gait disturbance [Unknown]

NARRATIVE: CASE EVENT DATE: 20230101
